FAERS Safety Report 19070206 (Version 7)
Quarter: 2023Q1

REPORT INFORMATION
  Report Type: Report from Study
  Country: US (occurrence: US)
  Receive Date: 20210329
  Receipt Date: 20230324
  Transmission Date: 20230418
  Serious: No
  Sender: FDA-Public Use
  Company Number: NVSC2021US071100

PATIENT
  Sex: Female
  Weight: 98.1 kg

DRUGS (1)
  1. COSENTYX [Suspect]
     Active Substance: SECUKINUMAB
     Indication: Product used for unknown indication
     Dosage: UNK UNK, QMO
     Route: 058
     Dates: start: 20200217

REACTIONS (7)
  - Ill-defined disorder [Unknown]
  - Illness [Unknown]
  - Gait disturbance [Unknown]
  - Condition aggravated [Recovering/Resolving]
  - Hypokinesia [Recovering/Resolving]
  - Pain [Recovering/Resolving]
  - Infection [Recovered/Resolved]
